FAERS Safety Report 19665166 (Version 2)
Quarter: 2021Q3

REPORT INFORMATION
  Report Type: Spontaneous
  Country: US (occurrence: US)
  Receive Date: 20210805
  Receipt Date: 20210805
  Transmission Date: 20211014
  Serious: No
  Sender: FDA-Public Use
  Company Number: US-ROCHE-2831129

PATIENT
  Sex: Female

DRUGS (1)
  1. GAVRETO [Suspect]
     Active Substance: PRALSETINIB
     Indication: THYROID CANCER
     Dosage: TAKE 4 CAPSULES (400 MG TOTAL) BY MOUTH DAILY] TAKE 3 CAPSULES (400 MG TOTAL) BY MOUTH DAILY
     Route: 048
     Dates: start: 20210506

REACTIONS (3)
  - Diarrhoea [Unknown]
  - Dysphonia [Not Recovered/Not Resolved]
  - Hypertension [Not Recovered/Not Resolved]
